FAERS Safety Report 10376890 (Version 1)
Quarter: 2014Q3

REPORT INFORMATION
  Report Type: Spontaneous
  Country: US (occurrence: US)
  Receive Date: 20140811
  Receipt Date: 20140811
  Transmission Date: 20150326
  Serious: No
  Sender: FDA-Public Use
  Company Number: US-TEVA-500979USA

PATIENT
  Sex: Female

DRUGS (4)
  1. BETASERON [Suspect]
     Active Substance: INTERFERON BETA-1B
     Route: 065
  2. REBIF [Suspect]
     Active Substance: INTERFERON BETA-1A
     Route: 065
  3. COPAXONE [Suspect]
     Active Substance: GLATIRAMER ACETATE
  4. AVONEX [Suspect]
     Active Substance: INTERFERON BETA-1A
     Route: 065

REACTIONS (2)
  - Muscular weakness [Unknown]
  - Paraesthesia [Unknown]
